FAERS Safety Report 17534222 (Version 1)
Quarter: 2020Q1

REPORT INFORMATION
  Report Type: Spontaneous
  Country: US (occurrence: US)
  Receive Date: 20200312
  Receipt Date: 20200312
  Transmission Date: 20200409
  Serious: Yes (Hospitalization)
  Sender: FDA-Public Use
  Company Number: US-MALLINCKRODT-T202001090

PATIENT
  Sex: Female

DRUGS (1)
  1. H.P. ACTHAR [Suspect]
     Active Substance: CORTICOTROPIN
     Indication: SARCOIDOSIS
     Dosage: 80 UNITS, TWICE A WEEK
     Route: 058
     Dates: start: 20180205

REACTIONS (3)
  - Sarcoidosis [Unknown]
  - Hypersensitivity [Unknown]
  - Condition aggravated [Unknown]
